FAERS Safety Report 4270426-8 (Version None)
Quarter: 2004Q1

REPORT INFORMATION
  Report Type: 
  Country: None (occurrence: None)
  Receive Date: 20040114
  Receipt Date: 20040102
  Transmission Date: 20041129
  Serious: Yes (Hospitalization, Other)
  Sender: FDA-Public Use
  Company Number: GB-BRISTOL-MYERS SQUIBB COMPANY-12467783

PATIENT
  Age: 36 Year
  Sex: Female
  Weight: 40 kg

DRUGS (10)
  1. VIDEX [Suspect]
     Indication: HIV INFECTION
     Route: 048
     Dates: start: 20020912, end: 20030814
  2. VIREAD [Suspect]
     Indication: HIV INFECTION
     Route: 048
     Dates: start: 20020912, end: 20030814
  3. KALETRA [Suspect]
     Indication: HIV INFECTION
     Route: 048
     Dates: start: 20020912, end: 20030822
  4. LAMIVUDINE [Suspect]
     Dates: start: 20030814, end: 20030822
  5. COTRIM [Concomitant]
     Route: 048
     Dates: start: 19980101
  6. FLUCONAZOLE [Concomitant]
     Indication: CANDIDIASIS
     Route: 048
     Dates: start: 20030811, end: 20030822
  7. AMOXICILLIN [Concomitant]
     Indication: URINARY TRACT INFECTION
     Route: 048
     Dates: start: 20030508, end: 20030508
  8. DOMPERIDONE [Concomitant]
     Indication: VOMITING
     Route: 048
     Dates: start: 20030619, end: 20030822
  9. METOCLOPRAMIDE [Concomitant]
     Indication: VOMITING
     Route: 048
     Dates: start: 20030411, end: 20030822
  10. LANSOPRAZOLE [Concomitant]
     Indication: VOMITING
     Route: 048
     Dates: start: 20030811, end: 20030822

REACTIONS (7)
  - HYPOPHOSPHATAEMIA [None]
  - LIPASE INCREASED [None]
  - MARKEDLY REDUCED DIETARY INTAKE [None]
  - NEPHROPATHY [None]
  - PANCREATITIS ACUTE [None]
  - RENAL TUBULAR ACIDOSIS [None]
  - WEIGHT DECREASED [None]
